FAERS Safety Report 18642929 (Version 1)
Quarter: 2020Q4

REPORT INFORMATION
  Report Type: Spontaneous
  Country: US (occurrence: US)
  Receive Date: 20201221
  Receipt Date: 20201221
  Transmission Date: 20210114
  Serious: Yes (Other)
  Sender: FDA-Public Use
  Company Number: US-LUPIN PHARMACEUTICALS INC.-2020-05554

PATIENT
  Age: 56 Year
  Sex: Male

DRUGS (9)
  1. FUROSEMIDE. [Suspect]
     Active Substance: FUROSEMIDE
     Indication: HYPERMAGNESAEMIA
  2. LACTATED RINGERS SOLUTION [Suspect]
     Active Substance: CALCIUM CHLORIDE\POTASSIUM CHLORIDE\SODIUM CHLORIDE\SODIUM LACTATE
     Indication: HYPERMAGNESAEMIA
     Dosage: 125 MILLILITER
     Route: 065
  3. PIPERACILLIN/TAZOBACTAM [Concomitant]
     Active Substance: PIPERACILLIN SODIUM\TAZOBACTAM SODIUM
     Indication: EVIDENCE BASED TREATMENT
     Dosage: UNK
     Route: 065
  4. FUROSEMIDE. [Suspect]
     Active Substance: FUROSEMIDE
     Indication: TOXICITY TO VARIOUS AGENTS
     Dosage: 40 MILLIGRAM
     Route: 042
  5. CALCIUM [Suspect]
     Active Substance: CALCIUM
     Indication: HYPERMAGNESAEMIA
     Dosage: 2 GRAM (ADDITIONAL DOSE DUE TO NO IMPROVEMENT ON PREVIOUS DOSE)
     Route: 042
  6. CALCIUM [Suspect]
     Active Substance: CALCIUM
     Dosage: 4 GRAM (ADDITIONAL DOSE DUE TO NO IMPROVEMENT ON PREVIOUS DOSES)
     Route: 042
  7. CALCIUM [Suspect]
     Active Substance: CALCIUM
     Indication: TOXICITY TO VARIOUS AGENTS
     Dosage: 2 GRAM
     Route: 042
  8. LACTATED RINGERS SOLUTION [Suspect]
     Active Substance: CALCIUM CHLORIDE\POTASSIUM CHLORIDE\SODIUM CHLORIDE\SODIUM LACTATE
     Indication: TOXICITY TO VARIOUS AGENTS
     Dosage: 2 LITER
     Route: 065
  9. VANCOMYCIN [Concomitant]
     Active Substance: VANCOMYCIN
     Indication: EVIDENCE BASED TREATMENT
     Dosage: UNK
     Route: 065

REACTIONS (1)
  - Drug ineffective [Unknown]
